FAERS Safety Report 7151049-X (Version None)
Quarter: 2010Q4

REPORT INFORMATION
  Report Type: 
  Country: None (occurrence: None)
  Receive Date: 20101210
  Receipt Date: 20101201
  Transmission Date: 20110411
  Serious: Yes (Other)
  Sender: FDA-Public Use
  Company Number: B0688414A

PATIENT
  Sex: Male

DRUGS (2)
  1. DELAVIRDINE [Suspect]
     Indication: PRODUCT USED FOR UNKNOWN INDICATION
     Route: 048
     Dates: start: 20060101, end: 20100701
  2. ETRAVIRINE [Suspect]
     Indication: PRODUCT USED FOR UNKNOWN INDICATION
     Route: 048
     Dates: start: 20100701

REACTIONS (6)
  - ABDOMINAL DISTENSION [None]
  - BODY FAT DISORDER [None]
  - EYE SWELLING [None]
  - FACE OEDEMA [None]
  - FAT TISSUE INCREASED [None]
  - LIPODYSTROPHY ACQUIRED [None]
